FAERS Safety Report 23831257 (Version 1)
Quarter: 2024Q2

REPORT INFORMATION
  Report Type: Spontaneous
  Country: CA (occurrence: CA)
  Receive Date: 20240508
  Receipt Date: 20240508
  Transmission Date: 20240716
  Serious: Yes (Other)
  Sender: FDA-Public Use
  Company Number: CA-TEVA-VS-3195527

PATIENT

DRUGS (2)
  1. TOPOTECAN [Suspect]
     Active Substance: TOPOTECAN HYDROCHLORIDE
     Indication: Osteosarcoma metastatic
     Route: 065
  2. PAZOPANIB [Suspect]
     Active Substance: PAZOPANIB
     Indication: Osteosarcoma metastatic
     Route: 065

REACTIONS (3)
  - Malignant neoplasm progression [Unknown]
  - Osteosarcoma metastatic [Unknown]
  - Product use in unapproved indication [Unknown]
